FAERS Safety Report 10076543 (Version 2)
Quarter: 2014Q2

REPORT INFORMATION
  Report Type: Spontaneous
  Country: US (occurrence: US)
  Receive Date: 20140414
  Receipt Date: 20140515
  Transmission Date: 20141212
  Serious: No
  Sender: FDA-Public Use
  Company Number: US-PFIZER INC-2014103339

PATIENT
  Sex: Male

DRUGS (3)
  1. DILANTIN [Suspect]
     Dosage: UNK
  2. LYRICA [Suspect]
     Dosage: UNK
  3. CELEBREX [Concomitant]
     Dosage: UNK

REACTIONS (1)
  - Sinus disorder [Unknown]
